FAERS Safety Report 17243978 (Version 2)
Quarter: 2020Q1

REPORT INFORMATION
  Report Type: Spontaneous
  Country: US (occurrence: US)
  Receive Date: 20200107
  Receipt Date: 20200110
  Transmission Date: 20200409
  Serious: Yes (Life-Threatening, Hospitalization, Other)
  Sender: FDA-Public Use
  Company Number: US-PURDUE PHARMA-USA-2020-0149519

PATIENT
  Age: 52 Year
  Sex: Male

DRUGS (4)
  1. COCAINE [Suspect]
     Active Substance: COCAINE
     Indication: PRODUCT USED FOR UNKNOWN INDICATION
     Dosage: 500 MG, DAILY
     Route: 065
     Dates: start: 2012
  2. OXYCODONE HYDROCHLORIDE (SIMILAR TO NDA 22-272) [Suspect]
     Active Substance: OXYCODONE HYDROCHLORIDE
     Indication: PAIN
     Dosage: 80 MG, UNK
     Route: 048
     Dates: end: 2018
  3. COCAINE [Suspect]
     Active Substance: COCAINE
     Dosage: 1000 MG, DAILY
     Route: 065
     Dates: start: 201504
  4. OXYCONTIN [Suspect]
     Active Substance: OXYCODONE HYDROCHLORIDE
     Indication: PAIN
     Dosage: 80 MG, DAILY
     Route: 048
     Dates: start: 2005, end: 2018

REACTIONS (24)
  - Near death experience [Unknown]
  - Internal haemorrhage [Unknown]
  - Pneumonia [Not Recovered/Not Resolved]
  - Respiratory disorder [Not Recovered/Not Resolved]
  - Throat cancer [Not Recovered/Not Resolved]
  - Hypertensive crisis [Recovered/Resolved]
  - Overdose [Recovered/Resolved]
  - Unresponsive to stimuli [Unknown]
  - Radiation overdose [Not Recovered/Not Resolved]
  - Blood test abnormal [Unknown]
  - Substance abuse [Unknown]
  - Hospitalisation [Recovered/Resolved]
  - Spinal fracture [Unknown]
  - Loss of consciousness [Not Recovered/Not Resolved]
  - Nerve injury [Not Recovered/Not Resolved]
  - Pain [Unknown]
  - Tracheostomy [Not Recovered/Not Resolved]
  - Leukaemia [Not Recovered/Not Resolved]
  - Ear canal injury [Not Recovered/Not Resolved]
  - Mobility decreased [Unknown]
  - Fluid retention [Not Recovered/Not Resolved]
  - Blood glucose increased [Recovered/Resolved]
  - Migraine [Not Recovered/Not Resolved]
  - Insomnia [Unknown]

NARRATIVE: CASE EVENT DATE: 2009
